FAERS Safety Report 4593422-X (Version None)
Quarter: 2005Q1

REPORT INFORMATION
  Report Type: 
  Country: None (occurrence: None)
  Receive Date: 20050224
  Receipt Date: 20040621
  Transmission Date: 20050727
  Serious: No
  Sender: FDA-Public Use
  Company Number: US-BRISTOL-MYERS SQUIBB COMPANY-12625968

PATIENT
  Sex: Female
  Weight: 44 kg

DRUGS (2)
  1. EXCEDRIN (MIGRAINE) [Suspect]
     Indication: TOOTHACHE
     Route: 048
     Dates: start: 20040620, end: 20040620
  2. ALEVE [Concomitant]
     Dates: start: 20040620, end: 20040620

REACTIONS (2)
  - ABDOMINAL PAIN UPPER [None]
  - NERVOUSNESS [None]
